FAERS Safety Report 13911477 (Version 1)
Quarter: 2017Q3

REPORT INFORMATION
  Report Type: Spontaneous
  Country: US (occurrence: US)
  Receive Date: 20170828
  Receipt Date: 20170828
  Transmission Date: 20171127
  Serious: Yes (Hospitalization, Other)
  Sender: FDA-Public Use
  Company Number: US-JNJFOC-20170820176

PATIENT

DRUGS (1)
  1. LEVAQUIN [Suspect]
     Active Substance: LEVOFLOXACIN
     Indication: PRODUCT USED FOR UNKNOWN INDICATION
     Route: 042

REACTIONS (13)
  - Hospitalisation [Unknown]
  - Pain [Unknown]
  - Nerve injury [Unknown]
  - Insomnia [Unknown]
  - Neuropathy peripheral [Unknown]
  - Headache [Unknown]
  - Expired product administered [Unknown]
  - Seizure [Unknown]
  - Nephropathy [Unknown]
  - Injury [Unknown]
  - Hypertension [Unknown]
  - Infection [Unknown]
  - Depression [Unknown]

NARRATIVE: CASE EVENT DATE: 20150806
